FAERS Safety Report 5033362-5 (Version None)
Quarter: 2006Q2

REPORT INFORMATION
  Report Type: 
  Country: None (occurrence: None)
  Receive Date: 20060623
  Receipt Date: 20060614
  Transmission Date: 20061013
  Serious: Yes (Hospitalization)
  Sender: FDA-Public Use
  Company Number: FR-ABBOTT-06P-056-0335992-00

PATIENT
  Age: 70 Year
  Sex: Female

DRUGS (3)
  1. DEPAKENE [Suspect]
     Indication: BIPOLAR I DISORDER
     Route: 048
  2. LITHIUM CARBONATE [Interacting]
     Indication: BIPOLAR I DISORDER
     Route: 048
  3. NSAID'S [Interacting]
     Indication: BACK PAIN
     Route: 048
     Dates: start: 20060106, end: 20060110

REACTIONS (3)
  - BLOOD CREATININE INCREASED [None]
  - CONFUSIONAL STATE [None]
  - DRUG INTERACTION [None]
